FAERS Safety Report 4412830-0 (Version None)
Quarter: 2004Q3

REPORT INFORMATION
  Report Type: 
  Country: None (occurrence: None)
  Receive Date: 20040730
  Receipt Date: 20040730
  Transmission Date: 20050211
  Serious: Yes (Disabling)
  Sender: FDA-Public Use
  Company Number: None

PATIENT
  Age: 39 Year
  Sex: Female
  Weight: 58.9676 kg

DRUGS (1)
  1. CIPROFLOXACIN 500 MG BAYER ? [Suspect]
     Indication: URINARY TRACT INFECTION
     Dosage: 1 PILL 1 TIME ORAL
     Route: 048

REACTIONS (5)
  - ARTHRALGIA [None]
  - FATIGUE [None]
  - MOVEMENT DISORDER [None]
  - PAIN [None]
  - SWELLING [None]
